FAERS Safety Report 4649260-2 (Version None)
Quarter: 2005Q2

REPORT INFORMATION
  Report Type: 
  Country: None (occurrence: None)
  Receive Date: 20050429
  Receipt Date: 20050426
  Transmission Date: 20051028
  Serious: Yes (Life-Threatening)
  Sender: FDA-Public Use
  Company Number: GB-MERCK-0504GBR00184

PATIENT
  Age: 64 Year
  Sex: Male
  Weight: 87 kg

DRUGS (5)
  1. ZETIA [Suspect]
     Indication: BLOOD CHOLESTEROL INCREASED
     Route: 048
     Dates: start: 20050209, end: 20050325
  2. FUROSEMIDE [Concomitant]
     Indication: HYPERTENSION
     Route: 048
     Dates: start: 20021002
  3. NITRAZEPAM [Concomitant]
     Indication: INSOMNIA
     Route: 048
     Dates: start: 20021201
  4. FLUVASTATIN SODIUM [Concomitant]
     Indication: BLOOD CHOLESTEROL INCREASED
     Route: 048
     Dates: start: 20040901
  5. ASPIRIN [Concomitant]
     Route: 048
     Dates: start: 20010601

REACTIONS (2)
  - DYSPHAGIA [None]
  - SWOLLEN TONGUE [None]
